FAERS Safety Report 25263866 (Version 1)
Quarter: 2025Q2

REPORT INFORMATION
  Report Type: Spontaneous
  Country: US (occurrence: None)
  Receive Date: 20250501
  Receipt Date: 20250501
  Transmission Date: 20250716
  Serious: Yes (Other)
  Sender: FDA-CTU
  Company Number: None

PATIENT
  Age: 55 Year
  Sex: Male
  Weight: 157 kg

DRUGS (1)
  1. OMADACYCLINE [Suspect]
     Active Substance: OMADACYCLINE
     Dates: start: 20250415, end: 20250418

REACTIONS (3)
  - Rash [None]
  - Dermatitis bullous [None]
  - Stevens-Johnson syndrome [None]

NARRATIVE: CASE EVENT DATE: 20250418
